FAERS Safety Report 21304544 (Version 1)
Quarter: 2022Q3

REPORT INFORMATION
  Report Type: Spontaneous
  Country: US (occurrence: None)
  Receive Date: 20220907
  Receipt Date: 20220907
  Transmission Date: 20221027
  Serious: No
  Sender: FDA-Public Use
  Company Number: US-FARMAPROD-202108-1544

PATIENT
  Sex: Female

DRUGS (19)
  1. OXERVATE [Suspect]
     Active Substance: CENEGERMIN-BKBJ
     Indication: Neurotrophic keratopathy
     Route: 047
     Dates: start: 20210819
  2. ZOLPIDEM TARTRATE [Concomitant]
     Active Substance: ZOLPIDEM TARTRATE
  3. SYNTHROID [Concomitant]
     Active Substance: LEVOTHYROXINE SODIUM
  4. SENOKOT [Concomitant]
     Active Substance: SENNOSIDES
  5. PROPRANOLOL HYDROCHLORIDE [Concomitant]
     Active Substance: PROPRANOLOL HYDROCHLORIDE
  6. WELLBUTRIN XL [Concomitant]
     Active Substance: BUPROPION HYDROCHLORIDE
  7. PROBIOTIC COLON SUPPORT [Concomitant]
  8. OXYCODONE w/ACETAMINOPHEN [Concomitant]
  9. OMEGA-3 w/FISH OIL and VIT D3 [Concomitant]
  10. NITROGLYCERIN [Concomitant]
     Active Substance: NITROGLYCERIN
  11. VITAMINS [Concomitant]
     Active Substance: VITAMINS
  12. MAGNESIUM [Concomitant]
     Active Substance: MAGNESIUM
  13. ICAPS AREDS2 [Concomitant]
  14. DOCUSATE SODIUM [Concomitant]
     Active Substance: DOCUSATE SODIUM
  15. VITAMIN D3 [Concomitant]
     Active Substance: CHOLECALCIFEROL
  16. ERYTHROMYCIN [Concomitant]
     Active Substance: ERYTHROMYCIN
  17. COMBIGAN [Concomitant]
     Active Substance: BRIMONIDINE TARTRATE\TIMOLOL MALEATE
  18. LUMIGAN [Concomitant]
     Active Substance: BIMATOPROST
  19. CEQUA [Concomitant]
     Active Substance: CYCLOSPORINE

REACTIONS (5)
  - Eye pain [Unknown]
  - Vision blurred [Unknown]
  - Product dose omission issue [Unknown]
  - Fall [Unknown]
  - Inappropriate schedule of product administration [Unknown]
